FAERS Safety Report 15584981 (Version 2)
Quarter: 2019Q1

REPORT INFORMATION
  Report Type: Spontaneous
  Country: IT (occurrence: IT)
  Receive Date: 20181105
  Receipt Date: 20190306
  Transmission Date: 20190417
  Serious: Yes (Other)
  Sender: FDA-Public Use
  Company Number: PHHY2018IT144146

PATIENT
  Age: 3 Year
  Sex: Female
  Weight: 16 kg

DRUGS (1)
  1. TEGRETOL [Suspect]
     Active Substance: CARBAMAZEPINE
     Indication: EPILEPSY
     Dosage: 500 MG, QD
     Route: 048
     Dates: start: 20180101, end: 20181004

REACTIONS (4)
  - Syncope [Recovering/Resolving]
  - Drug ineffective [Recovering/Resolving]
  - Lipoma [Recovering/Resolving]
  - Seizure [Recovering/Resolving]

NARRATIVE: CASE EVENT DATE: 20181002
